FAERS Safety Report 7291192-8 (Version None)
Quarter: 2011Q1

REPORT INFORMATION
  Report Type: 
  Country: None (occurrence: None)
  Receive Date: 20110214
  Receipt Date: 20110207
  Transmission Date: 20110831
  Serious: Yes (Hospitalization)
  Sender: FDA-Public Use
  Company Number: JP-MERCK-1011USA03621

PATIENT
  Age: 45 Year
  Sex: Male
  Weight: 33 kg

DRUGS (3)
  1. JANUVIA [Suspect]
     Indication: DIABETES MELLITUS
     Route: 048
     Dates: start: 20100130, end: 20100312
  2. CHAMPIX [Suspect]
     Indication: EX-TOBACCO USER
     Route: 048
     Dates: start: 20100907, end: 20101107
  3. JANUVIA [Suspect]
     Route: 048
     Dates: start: 20100313, end: 20101118

REACTIONS (1)
  - DIABETES MELLITUS [None]
